FAERS Safety Report 20904644 (Version 1)
Quarter: 2022Q2

REPORT INFORMATION
  Report Type: Spontaneous
  Country: DE (occurrence: DE)
  Receive Date: 20220602
  Receipt Date: 20220602
  Transmission Date: 20220721
  Serious: Yes (Hospitalization, Other)
  Sender: FDA-Public Use
  Company Number: DE-STRIDES ARCOLAB LIMITED-2022SP006467

PATIENT
  Age: 39 Year
  Sex: Female

DRUGS (1)
  1. TACROLIMUS [Suspect]
     Active Substance: TACROLIMUS
     Indication: Renal transplant
     Dosage: UNK
     Route: 065

REACTIONS (5)
  - Thrombotic microangiopathy [Recovered/Resolved]
  - Intestinal haemorrhage [Recovered/Resolved]
  - Kidney infection [Recovered/Resolved]
  - Cytomegalovirus infection [Recovered/Resolved]
  - Encephalitis cytomegalovirus [Recovered/Resolved]
